FAERS Safety Report 15523094 (Version 1)
Quarter: 2018Q4

REPORT INFORMATION
  Report Type: Spontaneous
  Country: GB (occurrence: GB)
  Receive Date: 20181017
  Receipt Date: 20181017
  Transmission Date: 20190205
  Serious: Yes (Other)
  Sender: FDA-Public Use
  Company Number: PHHY2018GB068548

PATIENT
  Sex: Female

DRUGS (1)
  1. GILENYA [Suspect]
     Active Substance: FINGOLIMOD HYDROCHLORIDE
     Indication: PRODUCT USED FOR UNKNOWN INDICATION
     Route: 065

REACTIONS (12)
  - Arthralgia [Unknown]
  - Eye infection [Unknown]
  - Multiple sclerosis relapse [Unknown]
  - Localised infection [Unknown]
  - Nail discolouration [Unknown]
  - Dysarthria [Unknown]
  - Amnesia [Unknown]
  - Tinnitus [Unknown]
  - Teething [Unknown]
  - Paronychia [Unknown]
  - Drug ineffective [Unknown]
  - Arthritis [Unknown]
